FAERS Safety Report 9846131 (Version 2)
Quarter: 2014Q2

REPORT INFORMATION
  Report Type: Spontaneous
  Country: US (occurrence: None)
  Receive Date: 20131223
  Receipt Date: 20140507
  Transmission Date: 20141212
  Serious: Yes (Death, Hospitalization)
  Sender: FDA-Public Use
  Company Number: SYM-2013-08554

PATIENT
  Age: 81 Year
  Sex: Male

DRUGS (1)
  1. XENAZINE (TETRABENAZINE) [Suspect]
     Indication: PRODUCT USED FOR UNKNOWN INDICATION
     Route: 048
     Dates: start: 20120815

REACTIONS (1)
  - Pneumonia [None]
